FAERS Safety Report 15335925 (Version 2)
Quarter: 2018Q3

REPORT INFORMATION
  Report Type: Spontaneous
  Country: BR (occurrence: BR)
  Receive Date: 20180830
  Receipt Date: 20180913
  Transmission Date: 20181010
  Serious: Yes (Other)
  Sender: FDA-Public Use
  Company Number: PHHY2018BR083564

PATIENT
  Age: 55 Year
  Sex: Male
  Weight: 74 kg

DRUGS (1)
  1. DUOTRAV BAC?FREE [Suspect]
     Active Substance: TIMOLOL\TRAVOPROST
     Indication: INTRAOCULAR PRESSURE INCREASED
     Dosage: 1 GTT, QHS
     Route: 047
     Dates: start: 20180817, end: 20180819

REACTIONS (6)
  - Anterior chamber inflammation [Recovered/Resolved]
  - Ocular hyperaemia [Recovered/Resolved]
  - Lacrimation increased [Recovered/Resolved]
  - Photophobia [Recovered/Resolved]
  - Ocular discomfort [Recovered/Resolved]
  - Eye pain [Recovered/Resolved]

NARRATIVE: CASE EVENT DATE: 20180818
